FAERS Safety Report 7405478-7 (Version None)
Quarter: 2011Q2

REPORT INFORMATION
  Report Type: 
  Country: None (occurrence: None)
  Receive Date: 20110411
  Receipt Date: 20110311
  Transmission Date: 20111010
  Serious: Yes (Other)
  Sender: FDA-Public Use
  Company Number: US-BAYER-201039458NA

PATIENT
  Age: 33 Year
  Sex: Female
  Weight: 86.168 kg

DRUGS (5)
  1. YASMIN [Suspect]
     Indication: PRODUCT USED FOR UNKNOWN INDICATION
     Route: 048
     Dates: start: 20061001, end: 20081201
  2. IBUPROFEN [Concomitant]
     Dosage: UNK UNK, QD
  3. OCELLA [Suspect]
     Indication: PRODUCT USED FOR UNKNOWN INDICATION
     Route: 048
     Dates: start: 20061001, end: 20081201
  4. HYDROCODONE BITARTRATE [Concomitant]
  5. MULTI-VITAMIN [Concomitant]

REACTIONS (1)
  - DEEP VEIN THROMBOSIS [None]
